FAERS Safety Report 11516670 (Version 1)
Quarter: 2015Q3

REPORT INFORMATION
  Report Type: Spontaneous
  Country: CA (occurrence: CA)
  Receive Date: 20150917
  Receipt Date: 20150917
  Transmission Date: 20151125
  Serious: Yes (Hospitalization)
  Sender: FDA-Public Use
  Company Number: CA-TEVA-593405ACC

PATIENT
  Age: 59 Year
  Sex: Male
  Weight: 90 kg

DRUGS (13)
  1. ASPIRIN. [Interacting]
     Active Substance: ASPIRIN
     Indication: CATHETERISATION CARDIAC
  2. ASPIRIN. [Interacting]
     Active Substance: ASPIRIN
     Indication: CORONARY ARTERIAL STENT INSERTION
     Dosage: 81 MILLIGRAM DAILY;
     Route: 048
  3. BRILINTA [Interacting]
     Active Substance: TICAGRELOR
     Indication: CATHETERISATION CARDIAC
  4. BRILINTA [Interacting]
     Active Substance: TICAGRELOR
     Indication: ACUTE MYOCARDIAL INFARCTION
  5. HYDROCHLOROTHIAZIDE. [Concomitant]
     Active Substance: HYDROCHLOROTHIAZIDE
  6. CLOPIDOGREL [Suspect]
     Active Substance: CLOPIDOGREL BISULFATE
     Indication: PRODUCT USED FOR UNKNOWN INDICATION
     Dosage: 75 MILLIGRAM DAILY;
     Route: 048
  7. ATORVASTATIN CALCIUM. [Concomitant]
     Active Substance: ATORVASTATIN CALCIUM
  8. METOPROLOL [Concomitant]
     Active Substance: METOPROLOL
  9. PERINDOPRIL [Concomitant]
     Active Substance: PERINDOPRIL
  10. METFORMIN [Concomitant]
     Active Substance: METFORMIN HYDROCHLORIDE
  11. ASPIRIN. [Interacting]
     Active Substance: ASPIRIN
     Indication: ACUTE MYOCARDIAL INFARCTION
  12. BRILINTA [Interacting]
     Active Substance: TICAGRELOR
     Indication: CORONARY ARTERIAL STENT INSERTION
     Dosage: 180 MILLIGRAM DAILY;
     Route: 048
  13. ENOXAPARIN [Interacting]
     Active Substance: ENOXAPARIN
     Indication: ACUTE MYOCARDIAL INFARCTION
     Dosage: ONCE
     Route: 058

REACTIONS (6)
  - Haemoglobin decreased [Unknown]
  - Haematemesis [Unknown]
  - Transfusion [Unknown]
  - Gastrointestinal ulcer [Unknown]
  - Drug interaction [Unknown]
  - Haematocrit decreased [Unknown]
